FAERS Safety Report 6212238-1 (Version None)
Quarter: 2009Q2

REPORT INFORMATION
  Report Type: 
  Country: None (occurrence: None)
  Receive Date: 20090529
  Receipt Date: 20090213
  Transmission Date: 20091009
  Serious: Yes (Hospitalization)
  Sender: FDA-Public Use
  Company Number: 235818

PATIENT
  Sex: Male
  Weight: 86 kg

DRUGS (11)
  1. CARBOPLATIN [Suspect]
     Indication: NON-SMALL CELL LUNG CANCER
     Dosage: 1140 MG, ONCE EVERY 3 WEEKS, INTRAVENOUS
     Route: 042
  2. PACLITAXEL [Suspect]
     Indication: NON-SMALL CELL LUNG CANCER
     Dosage: 410 MG, 1 EVERY 3 WEEKS, INTRAVENOUS
     Route: 042
  3. (BEVACIZUMAB) [Suspect]
     Indication: NON-SMALL CELL LUNG CANCER
     Dosage: 1275 MG, ONCE EVERY 3 WEEKS, INTRAVENOUS
     Route: 042
  4. PROMETHAZINE HCL [Concomitant]
  5. (PARACETAMOL) [Concomitant]
  6. ONDANSETRON [Concomitant]
  7. METOCLOPRAMIDE [Concomitant]
  8. SODIUM CHLORIDE [Concomitant]
  9. (DARBEPOETIN ALFA) [Concomitant]
  10. RANITIDINE [Concomitant]
  11. DEXAMETHASONE [Concomitant]

REACTIONS (4)
  - ANAEMIA [None]
  - DEEP VEIN THROMBOSIS [None]
  - NEUTROPENIA [None]
  - RENAL IMPAIRMENT [None]
